FAERS Safety Report 20725107 (Version 1)
Quarter: 2022Q2

REPORT INFORMATION
  Report Type: Spontaneous
  Country: US (occurrence: US)
  Receive Date: 20220419
  Receipt Date: 20220419
  Transmission Date: 20220720
  Serious: No
  Sender: FDA-Public Use
  Company Number: US-PFIZER INC-202200574030

PATIENT
  Sex: Female

DRUGS (3)
  1. PAXLOVID [Suspect]
     Active Substance: NIRMATRELVIR\RITONAVIR
     Indication: COVID-19 treatment
     Dosage: UNK
     Route: 048
     Dates: start: 20220408, end: 20220413
  2. THERAFLU ALERGIA [Concomitant]
     Dosage: UNK
     Dates: start: 20220401, end: 20220406
  3. ZYRTEC [Concomitant]
     Active Substance: CETIRIZINE HYDROCHLORIDE
     Dosage: UNK
     Dates: start: 202202, end: 20220409

REACTIONS (4)
  - Diarrhoea [Recovering/Resolving]
  - Dysgeusia [Recovering/Resolving]
  - Fatigue [Recovering/Resolving]
  - Heart rate increased [Recovering/Resolving]

NARRATIVE: CASE EVENT DATE: 20220411
